FAERS Safety Report 8051646 (Version 2)
Quarter: 2014Q3

REPORT INFORMATION
  Report Type: Spontaneous
  Country: US (occurrence: US)
  Receive Date: 20110725
  Receipt Date: 20140723
  Transmission Date: 20150326
  Serious: No
  Sender: FDA-Public Use
  Company Number: US-BRISTOL-MYERS SQUIBB COMPANY-15188543

PATIENT
  Age: 91 Year
  Sex: Male
  Weight: 86.17 kg

DRUGS (14)
  1. NORVASC [Concomitant]
     Active Substance: AMLODIPINE BESYLATE
  2. CENTRUM SILVER [Concomitant]
     Active Substance: VITAMINS
     Dosage: 1DF= 1 TAB
  3. METHYLPREDNISOLONE [Concomitant]
     Active Substance: METHYLPREDNISOLONE
  4. MULTIVITAMIN [Concomitant]
     Active Substance: VITAMINS
  5. ALTACE [Concomitant]
     Active Substance: RAMIPRIL
  6. CALTRATE WITH VITAMIN D [Concomitant]
     Active Substance: CALCIUM CARBONATE\VITAMIN D
     Dosage: 1DF= 1 TAB
  7. VITAMIN D [Concomitant]
     Active Substance: CHOLECALCIFEROL
  8. COUMADIN [Suspect]
     Active Substance: WARFARIN SODIUM
     Indication: ATRIAL FIBRILLATION
     Dosage: 1DF= 3 MG EVERY OTHER DAY AND 3.5 MG ON THE OPPOSITE DAY
     Dates: start: 2003
  9. ZOCOR [Concomitant]
     Active Substance: SIMVASTATIN
  10. POTASSIUM CHLORIDE. [Concomitant]
     Active Substance: POTASSIUM CHLORIDE
     Dosage: EXTEND TABS
  11. TOPROL XL [Concomitant]
     Active Substance: METOPROLOL SUCCINATE
  12. LASIX [Concomitant]
     Active Substance: FUROSEMIDE
     Dosage: 1DF=40 MG DAILY WITH 60 MG EVERY 5TH DAY
  13. DOXAZOSIN [Concomitant]
     Active Substance: DOXAZOSIN\DOXAZOSIN MESYLATE
     Dosage: 1DF=2 DAILY
  14. TYLENOL [Suspect]
     Active Substance: ACETAMINOPHEN

REACTIONS (2)
  - International normalised ratio increased [Unknown]
  - Contusion [Unknown]
